FAERS Safety Report 21275010 (Version 1)
Quarter: 2022Q3

REPORT INFORMATION
  Report Type: Spontaneous
  Country: CN (occurrence: CN)
  Receive Date: 20220831
  Receipt Date: 20220831
  Transmission Date: 20221027
  Serious: Yes (Hospitalization)
  Sender: FDA-Public Use
  Company Number: CN-009507513-2208CHN010295

PATIENT
  Age: 72 Year
  Sex: Female
  Weight: 70 kg

DRUGS (5)
  1. KEYTRUDA [Suspect]
     Active Substance: PEMBROLIZUMAB
     Indication: Endometrial adenocarcinoma
     Dosage: DOSE: 200 MG, FREQUENCY: ONCE EVERY 7 DAYS
     Route: 041
     Dates: start: 20220628, end: 20220629
  2. KEYTRUDA [Suspect]
     Active Substance: PEMBROLIZUMAB
     Indication: Vaginal cancer metastatic
  3. KEYTRUDA [Suspect]
     Active Substance: PEMBROLIZUMAB
     Indication: Metastases to abdominal wall
  4. KEYTRUDA [Suspect]
     Active Substance: PEMBROLIZUMAB
     Indication: Intestinal metastasis
  5. THROMBOPOIETIN [Suspect]
     Active Substance: THROMBOPOIETIN
     Indication: Platelet count decreased
     Dosage: UNK, QD
     Route: 058
     Dates: start: 20220808, end: 20220815

REACTIONS (4)
  - Platelet count decreased [Unknown]
  - Drug ineffective [Unknown]
  - Product use issue [Unknown]
  - Product use in unapproved indication [Unknown]

NARRATIVE: CASE EVENT DATE: 20220628
